FAERS Safety Report 11113241 (Version 2)
Quarter: 2015Q2

REPORT INFORMATION
  Report Type: Report from Study
  Country: BE (occurrence: BE)
  Receive Date: 20150514
  Receipt Date: 20150521
  Transmission Date: 20150821
  Serious: Yes (Hospitalization)
  Sender: FDA-Public Use
  Company Number: BE-ABBVIE-14P-013-1302808-00

PATIENT
  Sex: Male

DRUGS (3)
  1. DUODOPA [Suspect]
     Active Substance: CARBIDOPA\LEVODOPA
     Dosage: AM = 3 ML, CD = 3.8 ML/H DURING 16H, ED = 1.5 ML, ND = 3.8 ML/H DURING 8H
     Route: 050
     Dates: start: 20141022
  2. DUODOPA [Suspect]
     Active Substance: CARBIDOPA\LEVODOPA
     Indication: PARKINSON^S DISEASE
     Dosage: AM = 6 ML, CD = 3.1 ML/H DURING 16H, ED = 1 ML
     Route: 050
     Dates: start: 20101025, end: 20101029
  3. DUODOPA [Suspect]
     Active Substance: CARBIDOPA\LEVODOPA
     Dosage: DOSE CONTINUOUSLY MONITORED AND ADAPTED
     Route: 050
     Dates: start: 20101029, end: 20141022

REACTIONS (5)
  - Freezing phenomenon [Unknown]
  - Gastrostomy [Recovered/Resolved]
  - On and off phenomenon [Unknown]
  - Tremor [Unknown]
  - Device dislocation [Unknown]
